FAERS Safety Report 13632741 (Version 1)
Quarter: 2017Q2

REPORT INFORMATION
  Report Type: Spontaneous
  Country: US (occurrence: US)
  Receive Date: 20170531
  Receipt Date: 20170531
  Transmission Date: 20170830
  Serious: No
  Sender: FDA-Public Use
  Company Number: US-ASTELLAS-1477286

PATIENT
  Sex: Male

DRUGS (13)
  1. PRAMIPEXOLE. [Concomitant]
     Active Substance: PRAMIPEXOLE
  2. LISINOPRIL. [Concomitant]
     Active Substance: LISINOPRIL
  3. DORZOLAMIDE [Concomitant]
     Active Substance: DORZOLAMIDE
  4. ISOSORBIDE MONONITRAT [Concomitant]
  5. CLOPIDOGREL [Concomitant]
     Active Substance: CLOPIDOGREL BISULFATE
  6. FENOFIBRATE. [Concomitant]
     Active Substance: FENOFIBRATE
  7. PRAVASTATIN. [Concomitant]
     Active Substance: PRAVASTATIN
  8. AMLODIPINE [Concomitant]
     Active Substance: AMLODIPINE BESYLATE
  9. PAROXETINE. [Concomitant]
     Active Substance: PAROXETINE
  10. TARCEVA [Suspect]
     Active Substance: ERLOTINIB HYDROCHLORIDE
     Indication: LUNG NEOPLASM MALIGNANT
     Route: 048
     Dates: start: 20140419
  11. OMEPRAZOLE. [Concomitant]
     Active Substance: OMEPRAZOLE
  12. DICYCLOMINE [Concomitant]
     Active Substance: DICYCLOMINE HYDROCHLORIDE
  13. LATANOPROST. [Concomitant]
     Active Substance: LATANOPROST

REACTIONS (1)
  - Diarrhoea [Unknown]
